FAERS Safety Report 16081333 (Version 5)
Quarter: 2025Q3

REPORT INFORMATION
  Report Type: Spontaneous
  Country: EU (occurrence: EU)
  Receive Date: 20190316
  Receipt Date: 20250910
  Transmission Date: 20251021
  Serious: Yes (Other)
  Sender: AUROBINDO
  Company Number: EU-AUROBINDO-AUR-APL-2019-013233

PATIENT
  Age: 68 Year
  Sex: Female
  Weight: 56 kg

DRUGS (15)
  1. PARICALCITOL [Suspect]
     Active Substance: PARICALCITOL
     Indication: Hyperparathyroidism secondary
     Route: 065
  2. PARICALCITOL [Suspect]
     Active Substance: PARICALCITOL
     Route: 065
  3. CINACALCET [Suspect]
     Active Substance: CINACALCET
     Indication: Hyperparathyroidism secondary
     Route: 065
  4. ACENOCOUMAROL [Suspect]
     Active Substance: ACENOCOUMAROL
     Indication: Pulmonary embolism
     Route: 065
  5. PAMIDRONATE [Suspect]
     Active Substance: PAMIDRONATE DISODIUM
     Indication: Calciphylaxis
     Dosage: 30 MILLIGRAM, EVERY WEEK
     Route: 042
  6. EPOETIN ALFA [Concomitant]
     Active Substance: ERYTHROPOIETIN
     Indication: Product used for unknown indication
     Route: 065
  7. ETELCALCETIDE [Concomitant]
     Active Substance: ETELCALCETIDE
     Indication: Product used for unknown indication
     Route: 042
  8. ETELCALCETIDE [Concomitant]
     Active Substance: ETELCALCETIDE
     Route: 042
  9. ETELCALCETIDE [Concomitant]
     Active Substance: ETELCALCETIDE
     Route: 042
  10. FOLIC ACID [Concomitant]
     Active Substance: FOLIC ACID
     Indication: Product used for unknown indication
     Route: 065
  11. HEPARIN [Concomitant]
     Active Substance: HEPARIN SODIUM
     Indication: Product used for unknown indication
     Route: 065
  12. LEVOTHYROXINE [Concomitant]
     Active Substance: LEVOTHYROXINE
     Indication: Product used for unknown indication
     Route: 065
  13. OMEPRAZOLE [Concomitant]
     Active Substance: OMEPRAZOLE
     Indication: Product used for unknown indication
     Route: 065
  14. SEVELAMER [Concomitant]
     Active Substance: SEVELAMER
     Indication: Hyperparathyroidism secondary
     Route: 065
  15. SODIUM THIOSULFATE [Concomitant]
     Active Substance: SODIUM THIOSULFATE
     Indication: Calciphylaxis
     Route: 042

REACTIONS (3)
  - Calciphylaxis [Recovering/Resolving]
  - Hypocalcaemia [Unknown]
  - Gastrointestinal disorder [Unknown]

NARRATIVE: CASE EVENT DATE: 20170501
